FAERS Safety Report 5632530-9 (Version None)
Quarter: 2008Q1

REPORT INFORMATION
  Report Type: 
  Country: None (occurrence: None)
  Receive Date: 20080131
  Receipt Date: 20071010
  Transmission Date: 20080703
  Serious: No
  Sender: FDA-Public Use
  Company Number: 163-21880-07100639

PATIENT
  Age: 66 Year
  Sex: Female

DRUGS (3)
  1. REVLIMID [Suspect]
     Indication: MULTIPLE MYELOMA
     Dosage: 5 MG, DAILY 28/28, ORAL
     Route: 048
     Dates: start: 20070817, end: 20070921
  2. REVLIMID [Suspect]
     Indication: MULTIPLE MYELOMA
     Dosage: 5 MG, DAILY 28/28, ORAL
     Route: 048
     Dates: start: 20071012
  3. COUMADIN [Concomitant]

REACTIONS (1)
  - PNEUMONIA [None]
